FAERS Safety Report 6357792-4 (Version None)
Quarter: 2009Q3

REPORT INFORMATION
  Report Type: 
  Country: None (occurrence: None)
  Receive Date: 20090911
  Receipt Date: 20090902
  Transmission Date: 20100115
  Serious: Yes (Other)
  Sender: FDA-Public Use
  Company Number: 372474

PATIENT
  Age: 60 Year
  Sex: Female

DRUGS (1)
  1. PACLITAXEL [Suspect]
     Dosage: 100 MG/M2, INTRAVENOUS
     Route: 042
     Dates: start: 20090828, end: 20090828

REACTIONS (4)
  - CHEST DISCOMFORT [None]
  - COUGH [None]
  - FLUSHING [None]
  - INFUSION RELATED REACTION [None]
